FAERS Safety Report 7700173-9 (Version None)
Quarter: 2011Q3

REPORT INFORMATION
  Report Type: 
  Country: None (occurrence: None)
  Receive Date: 20110822
  Receipt Date: 20110817
  Transmission Date: 20111222
  Serious: Yes (Other)
  Sender: FDA-Public Use
  Company Number: US-PFIZER INC-2011132584

PATIENT
  Sex: Female

DRUGS (4)
  1. AMITRIPTYLINE [Concomitant]
     Indication: DEPRESSION
     Dosage: UNK
     Dates: start: 20030101
  2. XANAX [Concomitant]
     Indication: NERVOUSNESS
     Dosage: UNK
     Dates: start: 20030101, end: 20100101
  3. XANAX [Concomitant]
     Indication: ANXIETY
  4. CHANTIX [Suspect]
     Indication: SMOKING CESSATION THERAPY
     Dosage: UNK
     Dates: start: 20080430, end: 20080531

REACTIONS (7)
  - IRRITABILITY [None]
  - MENTAL DISORDER [None]
  - DEPRESSION [None]
  - AGGRESSION [None]
  - ANXIETY [None]
  - SUICIDAL IDEATION [None]
  - LOSS OF CONSCIOUSNESS [None]
